FAERS Safety Report 6670966-8 (Version None)
Quarter: 2010Q2

REPORT INFORMATION
  Report Type: 
  Country: None (occurrence: None)
  Receive Date: 20100407
  Receipt Date: 20100329
  Transmission Date: 20101027
  Serious: Yes (Hospitalization)
  Sender: FDA-Public Use
  Company Number: JP-ASTRAZENECA-2010SE11706

PATIENT
  Age: 82 Year
  Sex: Female

DRUGS (3)
  1. GEFITINIB [Suspect]
     Indication: NON-SMALL CELL LUNG CANCER
     Route: 048
     Dates: start: 20071001
  2. GEFITINIB [Suspect]
     Route: 048
  3. NILVADIPINE [Concomitant]
     Indication: HYPERTENSION
     Route: 048

REACTIONS (3)
  - HAEMATURIA [None]
  - HYDRONEPHROSIS [None]
  - PROTEINURIA [None]
